FAERS Safety Report 4750367-X (Version None)
Quarter: 2005Q3

REPORT INFORMATION
  Report Type: 
  Country: None (occurrence: None)
  Receive Date: 20050818
  Receipt Date: 20050808
  Transmission Date: 20060218
  Serious: Yes (Disabling)
  Sender: FDA-Public Use
  Company Number: 032-5

PATIENT
  Age: 54 Year
  Sex: Male

DRUGS (8)
  1. TEVETEN [Suspect]
     Indication: HYPERTENSION
     Dates: start: 20041015, end: 20050317
  2. METHYLDOPA [Concomitant]
  3. COVERSYL PLUS [Concomitant]
  4. ATENOLOL [Concomitant]
  5. METFORMIN HCL [Concomitant]
  6. GLIPIZDE [Concomitant]
  7. AMLODIPINE BESILATE [Concomitant]
  8. ATORVASTATIN [Concomitant]

REACTIONS (3)
  - CEREBROVASCULAR ACCIDENT [None]
  - HYPERTENSION [None]
  - LOSS OF CONSCIOUSNESS [None]
